FAERS Safety Report 5625167-9 (Version None)
Quarter: 2008Q1

REPORT INFORMATION
  Report Type: 
  Country: None (occurrence: None)
  Receive Date: 20080208
  Receipt Date: 20080124
  Transmission Date: 20080703
  Serious: Yes (Hospitalization)
  Sender: FDA-Public Use
  Company Number: PAR_02084_2008

PATIENT
  Age: 49 Year
  Sex: Male

DRUGS (5)
  1. IBUPROFEN [Suspect]
     Indication: OVERDOSE
     Dosage: (3 TO 5 TABLETS 1X)
     Dates: start: 20020818
  2. ACETAMINOPHEN [Suspect]
     Indication: OVERDOSE
     Dosage: (24 DF 1X)
     Dates: start: 20020818
  3. PREDNISOLONE [Suspect]
     Indication: OVERDOSE
     Dosage: (UP TO 10 TABLETS 1X)
     Dates: start: 20020818
  4. SEROXAT /00830802X (SEROXAT - PAROXETINE HYDROCHLORIDE) (NOT SPECIFIED [Suspect]
     Indication: DRUG USE FOR UNKNOWN INDICATION
     Dosage: (DF), (20 MG), (10 MG)
     Dates: start: 20020429, end: 20020901
  5. ALCOHOL [Concomitant]

REACTIONS (13)
  - ABNORMAL DREAMS [None]
  - AGGRESSION [None]
  - ANGER [None]
  - ANXIETY [None]
  - CONDITION AGGRAVATED [None]
  - DISTURBANCE IN ATTENTION [None]
  - EMOTIONAL DISORDER [None]
  - IRRITABILITY [None]
  - MULTIPLE DRUG OVERDOSE INTENTIONAL [None]
  - NIGHTMARE [None]
  - STRESS [None]
  - SUICIDE ATTEMPT [None]
  - WITHDRAWAL SYNDROME [None]
